FAERS Safety Report 8121122-8 (Version None)
Quarter: 2012Q1

REPORT INFORMATION
  Report Type: 
  Country: None (occurrence: None)
  Receive Date: 20120208
  Receipt Date: 20120130
  Transmission Date: 20120608
  Serious: Yes (Hospitalization)
  Sender: FDA-Public Use
  Company Number: US-BRISTOL-MYERS SQUIBB COMPANY-16374696

PATIENT
  Age: 47 Year
  Sex: Male

DRUGS (3)
  1. KOMBIGLYZE XR [Suspect]
     Indication: TYPE 2 DIABETES MELLITUS
     Dosage: 1DF=5MG/1000MG
     Dates: start: 20110501
  2. LIPITOR [Concomitant]
  3. METOPROLOL [Concomitant]

REACTIONS (1)
  - PANCREATITIS [None]
